FAERS Safety Report 26197123 (Version 1)
Quarter: 2025Q4

REPORT INFORMATION
  Report Type: Report from Study
  Country: CA (occurrence: CA)
  Receive Date: 20251224
  Receipt Date: 20251224
  Transmission Date: 20260118
  Serious: Yes (Hospitalization)
  Sender: JOHNSON AND JOHNSON
  Company Number: CA-JNJFOC-20251231256

PATIENT
  Age: 40 Year
  Sex: Female

DRUGS (1)
  1. SPRAVATO [Suspect]
     Active Substance: ESKETAMINE
     Indication: Depression
     Dosage: THERAPY DISCONTINUATION EFFECTIVE FROM 16-DEC-2025
     Route: 045
     Dates: start: 20251103, end: 20251210

REACTIONS (3)
  - Hospitalisation [Unknown]
  - Adverse event [Unknown]
  - Drug ineffective [Unknown]
